FAERS Safety Report 12099390 (Version 1)
Quarter: 2016Q1

REPORT INFORMATION
  Report Type: Spontaneous
  Country: US (occurrence: US)
  Receive Date: 20160222
  Receipt Date: 20160222
  Transmission Date: 20160526
  Serious: No
  Sender: FDA-Public Use
  Company Number: US-TEVA-581329USA

PATIENT
  Sex: Male
  Weight: 37.23 kg

DRUGS (1)
  1. AMOXICILLIN. [Suspect]
     Active Substance: AMOXICILLIN
     Indication: STREPTOCOCCAL INFECTION
     Dosage: 400 MG/5 ML
     Dates: start: 20150719

REACTIONS (1)
  - Blood glucose increased [Unknown]
